FAERS Safety Report 7516562-1 (Version None)
Quarter: 2011Q2

REPORT INFORMATION
  Report Type: 
  Country: None (occurrence: None)
  Receive Date: 20110601
  Receipt Date: 20110524
  Transmission Date: 20111010
  Serious: Yes (Hospitalization)
  Sender: FDA-Public Use
  Company Number: B0723195A

PATIENT
  Sex: Male

DRUGS (6)
  1. LEUPROLIDE ACETATE [Concomitant]
     Route: 030
  2. VALACYCLOVIR HYDROCHLORIDE [Suspect]
     Indication: LIVER DISORDER
     Dosage: 2UNIT PER DAY
     Route: 048
     Dates: start: 20110321, end: 20110421
  3. EUTIROX [Concomitant]
     Route: 048
  4. MICARDIS [Concomitant]
     Route: 048
  5. TOPAMAX [Concomitant]
     Route: 048
  6. PLAVIX [Concomitant]
     Route: 048

REACTIONS (2)
  - SYNCOPE [None]
  - DIARRHOEA [None]
